FAERS Safety Report 5902945-X (Version None)
Quarter: 2008Q3

REPORT INFORMATION
  Report Type: 
  Country: None (occurrence: None)
  Receive Date: 20080930
  Receipt Date: 20080926
  Transmission Date: 20090109
  Serious: Yes (Disabling)
  Sender: FDA-Public Use
  Company Number: FR-AVENTIS-200812792FR

PATIENT
  Age: 53 Year
  Sex: Male
  Weight: 81.9 kg

DRUGS (6)
  1. LANTUS [Suspect]
     Route: 058
     Dates: start: 20061016
  2. ZOCOR [Concomitant]
     Route: 048
     Dates: start: 20061001
  3. NOVORAPID [Concomitant]
     Route: 058
     Dates: start: 20061001
  4. LEVOTHYROX [Concomitant]
     Indication: HYPOTHYROIDISM
     Route: 048
     Dates: start: 20050101
  5. CRESTOR [Concomitant]
     Route: 048
     Dates: start: 20080101
  6. AMLODIPINE [Concomitant]
     Dates: start: 20080101

REACTIONS (3)
  - MACULAR OEDEMA [None]
  - RETINAL HAEMORRHAGE [None]
  - RETINAL VEIN OCCLUSION [None]
